FAERS Safety Report 9471321 (Version 1)
Quarter: 2013Q3

REPORT INFORMATION
  Report Type: Report from Study
  Country: CA (occurrence: CA)
  Receive Date: 20130822
  Receipt Date: 20130822
  Transmission Date: 20140515
  Serious: Yes (Other)
  Sender: FDA-Public Use
  Company Number: CA-BAYER-2013-101318

PATIENT
  Age: 65 Year
  Sex: Female

DRUGS (2)
  1. ALEVE [Suspect]
     Route: 065
  2. SIMPONI [Suspect]
     Dosage: 50 MG, Q1MON
     Route: 058

REACTIONS (2)
  - Fibromyalgia [Unknown]
  - Ulcer [Unknown]
